FAERS Safety Report 9861330 (Version 1)
Quarter: 2014Q1

REPORT INFORMATION
  Report Type: Spontaneous
  Country: JP (occurrence: JP)
  Receive Date: 20140202
  Receipt Date: 20140202
  Transmission Date: 20141002
  Serious: No
  Sender: FDA-Public Use
  Company Number: JP-ALLERGAN-1305135US

PATIENT
  Age: 24 Year
  Sex: Female

DRUGS (2)
  1. BOTOX [Suspect]
     Indication: TORTICOLLIS
     Dosage: 80 UNITS, SINGLE
     Route: 030
     Dates: start: 20120204, end: 20120204
  2. BOTOX [Suspect]
     Dosage: 180 UNITS, SINGLE
     Route: 030
     Dates: start: 20120601, end: 20120601

REACTIONS (2)
  - Oropharyngeal discomfort [Recovered/Resolved]
  - Dysphagia [Recovered/Resolved]
